FAERS Safety Report 8454192-8 (Version None)
Quarter: 2012Q2

REPORT INFORMATION
  Report Type: 
  Country: None (occurrence: None)
  Receive Date: 20120620
  Receipt Date: 20120615
  Transmission Date: 20120825
  Serious: Yes (Hospitalization, Other)
  Sender: FDA-Public Use
  Company Number: CA-ROCHE-1075650

PATIENT
  Sex: Female
  Weight: 63.56 kg

DRUGS (11)
  1. NAPROXEN [Concomitant]
  2. OXYCET [Concomitant]
  3. METHOTREXATE [Concomitant]
     Dosage: 1CC
     Route: 058
  4. ZOPLICONE (UNK INGREDIENTS) [Concomitant]
  5. MABTHERA [Suspect]
     Indication: RHEUMATOID ARTHRITIS
     Dosage: DAY 1, DAY 15
     Route: 042
     Dates: start: 20070412
  6. PANTOPRAZOLE SODIUM [Concomitant]
  7. ZOFRAN [Concomitant]
  8. SERC [Concomitant]
  9. EXTRA STRENGTH TYLENOL [Concomitant]
  10. PREDNISONE TAB [Concomitant]
  11. FOLIC ACID [Concomitant]

REACTIONS (9)
  - HYPERTONIC BLADDER [None]
  - BLOOD SODIUM DECREASED [None]
  - GALLBLADDER POLYP [None]
  - NERVE COMPRESSION [None]
  - RENAL ATROPHY [None]
  - NAUSEA [None]
  - VITAMIN B12 DECREASED [None]
  - VERTIGO [None]
  - RHEUMATOID ARTHRITIS [None]
